FAERS Safety Report 7978530-5 (Version None)
Quarter: 2011Q4

REPORT INFORMATION
  Report Type: 
  Country: None (occurrence: None)
  Receive Date: 20111214
  Receipt Date: 20111202
  Transmission Date: 20120403
  Serious: Yes (Hospitalization)
  Sender: FDA-Public Use
  Company Number: JP-JNJFOC-20111202045

PATIENT
  Sex: Male
  Weight: 58 kg

DRUGS (14)
  1. REMICADE [Suspect]
     Route: 042
     Dates: start: 20111017
  2. REMICADE [Suspect]
     Route: 042
     Dates: start: 20111017
  3. POLARAMINE [Concomitant]
     Route: 042
     Dates: start: 20111017, end: 20111017
  4. FLAGYL [Concomitant]
     Indication: CROHN'S DISEASE
     Route: 048
     Dates: start: 20111014, end: 20111027
  5. ZANTAC [Concomitant]
     Indication: GASTROOESOPHAGEAL REFLUX DISEASE
     Route: 048
     Dates: start: 20111017
  6. REMICADE [Suspect]
     Route: 042
     Dates: start: 20110928
  7. REMICADE [Suspect]
     Indication: CROHN'S DISEASE
     Route: 042
     Dates: start: 20110121
  8. REMICADE [Suspect]
     Route: 042
     Dates: start: 20060922
  9. REMICADE [Suspect]
     Route: 042
     Dates: start: 20110928
  10. PENTASA [Concomitant]
     Indication: CROHN'S DISEASE
     Route: 048
  11. REMICADE [Suspect]
     Indication: GASTRODUODENAL ULCER
     Route: 042
     Dates: start: 20110121
  12. REMICADE [Suspect]
     Route: 042
     Dates: start: 20060922
  13. FERRUM [Concomitant]
     Indication: IRON DEFICIENCY ANAEMIA
     Route: 048
     Dates: start: 20111015
  14. PLETAL [Concomitant]
     Indication: CEREBRAL INFARCTION
     Route: 048

REACTIONS (6)
  - ANAPHYLACTIC SHOCK [None]
  - HAEMATOCHEZIA [None]
  - NAUSEA [None]
  - INFUSION RELATED REACTION [None]
  - ANAEMIA [None]
  - PHARYNGITIS [None]
